FAERS Safety Report 17799548 (Version 1)
Quarter: 2020Q2

REPORT INFORMATION
  Report Type: Spontaneous
  Country: US (occurrence: US)
  Receive Date: 20200518
  Receipt Date: 20200518
  Transmission Date: 20200714
  Serious: No
  Sender: FDA-Public Use
  Company Number: US-THERAPEUTICSMD-2020TMD01095

PATIENT
  Age: 48 Year
  Sex: Female
  Weight: 54.42 kg

DRUGS (1)
  1. BIJUVA [Suspect]
     Active Substance: ESTRADIOL\PROGESTERONE
     Indication: NIGHT SWEATS
     Dosage: 1 CAPSULE, 1X/DAY IN THE MORNING WITHOUT FOOD
     Route: 048
     Dates: start: 202001

REACTIONS (2)
  - Product administration error [Not Recovered/Not Resolved]
  - Vaginal haemorrhage [Recovered/Resolved]

NARRATIVE: CASE EVENT DATE: 202001
